FAERS Safety Report 8561644-9 (Version None)
Quarter: 2012Q3

REPORT INFORMATION
  Report Type: 
  Country: None (occurrence: None)
  Receive Date: 20120802
  Receipt Date: 20120713
  Transmission Date: 20120928
  Serious: No
  Sender: FDA-Public Use
  Company Number: US-ASTRAZENECA-2012SE48897

PATIENT
  Age: 65 Year
  Sex: Male
  Weight: 99.8 kg

DRUGS (9)
  1. GENERIC FLUMAX [Concomitant]
     Indication: BENIGN PROSTATIC HYPERPLASIA
  2. LISINOPRIL [Suspect]
     Indication: BLOOD PRESSURE ABNORMAL
     Route: 048
  3. AMLODIPINE [Concomitant]
     Indication: BLOOD PRESSURE ABNORMAL
  4. CILOSTAZOL [Concomitant]
     Indication: THROMBOSIS PROPHYLAXIS
  5. ATENOLOL [Concomitant]
     Indication: BLOOD PRESSURE ABNORMAL
  6. PLAVIX [Concomitant]
  7. NEXIUM [Suspect]
     Indication: GASTROOESOPHAGEAL REFLUX DISEASE
     Route: 048
  8. CRESTOR [Suspect]
     Indication: BLOOD CHOLESTEROL ABNORMAL
     Route: 048
  9. TRAZODONE HYDROCHLORIDE [Concomitant]

REACTIONS (2)
  - INTENTIONAL DRUG MISUSE [None]
  - HIATUS HERNIA [None]
